FAERS Safety Report 20769895 (Version 2)
Quarter: 2022Q2

REPORT INFORMATION
  Report Type: Spontaneous
  Country: GB (occurrence: GB)
  Receive Date: 20220429
  Receipt Date: 20220516
  Transmission Date: 20220721
  Serious: Yes (Hospitalization)
  Sender: FDA-Public Use
  Company Number: GB-NOVARTISPH-NVSC2022GB094685

PATIENT
  Age: 50 Year
  Sex: Female
  Weight: 75 kg

DRUGS (1)
  1. ONDANSETRON [Suspect]
     Active Substance: ONDANSETRON
     Indication: Adverse drug reaction
     Dosage: 4 MG, TID
     Route: 065
     Dates: start: 20220329, end: 20220329

REACTIONS (16)
  - Visual impairment [Recovered/Resolved]
  - Abdominal pain upper [Recovering/Resolving]
  - Vomiting [Recovered/Resolved with Sequelae]
  - Hallucination [Recovered/Resolved]
  - Loss of consciousness [Recovered/Resolved]
  - Paraesthesia [Recovered/Resolved]
  - Respiration abnormal [Recovered/Resolved]
  - Gait inability [Recovered/Resolved]
  - Mental impairment [Recovered/Resolved]
  - Headache [Recovering/Resolving]
  - Muscular weakness [Recovered/Resolved]
  - Judgement impaired [Recovered/Resolved]
  - Emotional distress [Recovered/Resolved]
  - Balance disorder [Recovered/Resolved]
  - Medication error [Unknown]
  - Adverse drug reaction [Recovered/Resolved]

NARRATIVE: CASE EVENT DATE: 20220329
